FAERS Safety Report 12109409 (Version 1)
Quarter: 2016Q1

REPORT INFORMATION
  Report Type: Spontaneous
  Country: US (occurrence: US)
  Receive Date: 20160224
  Receipt Date: 20160224
  Transmission Date: 20160526
  Serious: No
  Sender: FDA-Public Use
  Company Number: US-PFIZER INC-2016114530

PATIENT
  Age: 82 Year
  Sex: Female

DRUGS (3)
  1. CIPRO [Suspect]
     Active Substance: CIPROFLOXACIN HYDROCHLORIDE
     Dosage: UNK
  2. CORTISONE [Suspect]
     Active Substance: CORTISONE\HYDROCORTISONE
  3. CEFALEXIN [Suspect]
     Active Substance: CEPHALEXIN
     Dosage: UNK

REACTIONS (2)
  - Urticaria [Not Recovered/Not Resolved]
  - Drug hypersensitivity [Unknown]
